FAERS Safety Report 16243248 (Version 2)
Quarter: 2020Q1

REPORT INFORMATION
  Report Type: Spontaneous
  Country: GB (occurrence: GB)
  Receive Date: 20190426
  Receipt Date: 20200129
  Transmission Date: 20200409
  Serious: Yes (Hospitalization, Other)
  Sender: FDA-Public Use
  Company Number: GB-PFIZER INC-2019175730

PATIENT
  Age: 55 Year
  Sex: Male

DRUGS (10)
  1. ZAPONEX [Suspect]
     Active Substance: CLOZAPINE
     Dosage: UNK
     Route: 048
     Dates: start: 20181120, end: 201901
  2. METFORMIN [Suspect]
     Active Substance: METFORMIN HYDROCHLORIDE
     Dosage: 3 G, UNK
     Dates: start: 20190327, end: 20190327
  3. ATORVASTATIN CALCIUM. [Suspect]
     Active Substance: ATORVASTATIN CALCIUM
     Dosage: 120 MG, UNK
     Dates: start: 20190327, end: 20190327
  4. ZAPONEX [Suspect]
     Active Substance: CLOZAPINE
     Dosage: 1 G, 1X/DAY
     Route: 048
     Dates: start: 20050805, end: 201808
  5. ZAPONEX [Suspect]
     Active Substance: CLOZAPINE
     Dosage: UNK
     Route: 048
     Dates: start: 20190116, end: 201903
  6. ZAPONEX [Suspect]
     Active Substance: CLOZAPINE
     Dosage: UNK
     Route: 048
     Dates: start: 2019
  7. ZAPONEX [Suspect]
     Active Substance: CLOZAPINE
     Dosage: UNK
  8. RAMIPRIL. [Suspect]
     Active Substance: RAMIPRIL
     Dosage: 7.5 MG, 1X/DAY (QD)
     Dates: start: 20190327, end: 20190327
  9. ZAPONEX [Suspect]
     Active Substance: CLOZAPINE
     Dosage: UNK
     Route: 048
     Dates: start: 20180828, end: 201811
  10. ZAPONEX [Suspect]
     Active Substance: CLOZAPINE
     Dosage: 1 G, UNK
     Route: 048
     Dates: start: 20190327, end: 20190327

REACTIONS (10)
  - Neutrophil count increased [Unknown]
  - Blood glucose decreased [Recovered/Resolved]
  - White blood cell count increased [Unknown]
  - Metabolic acidosis [Recovered/Resolved]
  - Tricuspid valve incompetence [Unknown]
  - Tachycardia [Recovered/Resolved]
  - Hypotension [Recovered/Resolved]
  - Body temperature decreased [Recovered/Resolved]
  - Pneumonia aspiration [Recovering/Resolving]
  - Overdose [Recovered/Resolved]

NARRATIVE: CASE EVENT DATE: 201903
